FAERS Safety Report 19140725 (Version 1)
Quarter: 2021Q2

REPORT INFORMATION
  Report Type: Spontaneous
  Country: US (occurrence: US)
  Receive Date: 20210415
  Receipt Date: 20210415
  Transmission Date: 20210717
  Serious: Yes (Death)
  Sender: FDA-Public Use
  Company Number: None

PATIENT
  Age: 73 Year
  Sex: Female
  Weight: 58.57 kg

DRUGS (17)
  1. OMEPRAZOLE. [Concomitant]
     Active Substance: OMEPRAZOLE
  2. SYNTHROID [Concomitant]
     Active Substance: LEVOTHYROXINE SODIUM
  3. WELLBUTRIN XL [Concomitant]
     Active Substance: BUPROPION HYDROCHLORIDE
  4. PROCHLORPERAZINE. [Concomitant]
     Active Substance: PROCHLORPERAZINE
  5. CLOBETASOL PROPIONATE. [Concomitant]
     Active Substance: CLOBETASOL PROPIONATE
  6. NIVESTYM [Suspect]
     Active Substance: FILGRASTIM-AAFI
     Indication: PERIPHERAL T-CELL LYMPHOMA UNSPECIFIED
     Route: 058
     Dates: start: 20210115, end: 20210415
  7. PSYLLIUM HUSK. [Concomitant]
     Active Substance: PSYLLIUM HUSK
  8. APIXABAN [Concomitant]
     Active Substance: APIXABAN
  9. DESONIDE. [Concomitant]
     Active Substance: DESONIDE
  10. MESTINON [Concomitant]
     Active Substance: PYRIDOSTIGMINE BROMIDE
  11. PREDNISONE. [Concomitant]
     Active Substance: PREDNISONE
  12. QUETIAPINE. [Concomitant]
     Active Substance: QUETIAPINE
  13. ALLOPURINOL. [Concomitant]
     Active Substance: ALLOPURINOL
  14. CARBOXYMETHYLCELLULOSE?GLYCERIN [Concomitant]
  15. CALCIUM CARBONATE. [Concomitant]
     Active Substance: CALCIUM CARBONATE
  16. ACYCLOVIR. [Concomitant]
     Active Substance: ACYCLOVIR
  17. VITAMIN D3 [Concomitant]
     Active Substance: CHOLECALCIFEROL

REACTIONS (1)
  - Death [None]

NARRATIVE: CASE EVENT DATE: 20210415
